FAERS Safety Report 11675959 (Version 2)
Quarter: 2015Q4

REPORT INFORMATION
  Report Type: Spontaneous
  Country: US (occurrence: US)
  Receive Date: 20151027
  Receipt Date: 20151104
  Transmission Date: 20160304
  Serious: No
  Sender: FDA-Public Use
  Company Number: US-ELI_LILLY_AND_COMPANY-US201004005964

PATIENT
  Age: 80 Year
  Sex: Female

DRUGS (2)
  1. FORTEO [Suspect]
     Active Substance: TERIPARATIDE
     Indication: OSTEOPOROSIS
     Dosage: 20 UG, DAILY (1/D)
     Dates: start: 20100409
  2. TUMS [Concomitant]
     Active Substance: CALCIUM CARBONATE

REACTIONS (11)
  - Asthenia [Unknown]
  - Movement disorder [Unknown]
  - Mobility decreased [Unknown]
  - Sciatic nerve neuropathy [Recovering/Resolving]
  - Parkinson^s disease [Unknown]
  - Mental impairment [Unknown]
  - Injection site pain [Unknown]
  - Blood calcium increased [Recovered/Resolved]
  - Nightmare [Unknown]
  - Muscular weakness [Unknown]
  - Gait disturbance [Unknown]

NARRATIVE: CASE EVENT DATE: 201004
